FAERS Safety Report 5639136-6 (Version None)
Quarter: 2008Q1

REPORT INFORMATION
  Report Type: 
  Country: None (occurrence: None)
  Receive Date: 20080226
  Receipt Date: 20080215
  Transmission Date: 20080703
  Serious: Yes (Hospitalization)
  Sender: FDA-Public Use
  Company Number: GB-ROCHE-536868

PATIENT
  Age: 31 Year
  Sex: Male

DRUGS (3)
  1. ISOTRETINOIN [Suspect]
     Route: 048
  2. ISOTRETINOIN [Suspect]
     Route: 048
  3. ISOTRETINOIN [Suspect]
     Route: 048

REACTIONS (2)
  - CHEST PAIN [None]
  - PLEURITIC PAIN [None]
